FAERS Safety Report 9915757 (Version 2)
Quarter: 2014Q1

REPORT INFORMATION
  Report Type: Spontaneous
  Country: US (occurrence: US)
  Receive Date: 20140221
  Receipt Date: 20140221
  Transmission Date: 20141002
  Serious: Yes (Hospitalization)
  Sender: FDA-Public Use
  Company Number: US-CELGENEUS-163-POMAL-14011110

PATIENT
  Age: 61 Year
  Sex: Male
  Weight: 51 kg

DRUGS (10)
  1. POMALYST [Suspect]
     Indication: PLASMA CELL MYELOMA
     Dosage: 2 MILLIGRAM
     Route: 048
     Dates: start: 20130911
  2. PROTONIX [Concomitant]
     Indication: GASTRIC ULCER
     Route: 065
  3. PHENERGAN [Concomitant]
     Indication: NAUSEA
     Route: 065
  4. ZOFRAN [Concomitant]
     Indication: NAUSEA
     Route: 065
  5. OXYCODONE HCL [Concomitant]
     Indication: PAIN
     Route: 065
  6. ATIVAN [Concomitant]
     Indication: PRODUCT USED FOR UNKNOWN INDICATION
     Route: 065
  7. RENA-VITE [Concomitant]
     Indication: HAEMODIALYSIS
     Route: 065
  8. COREG [Concomitant]
     Indication: SUBARACHNOID HAEMORRHAGE
     Route: 065
  9. XANAX [Concomitant]
     Indication: ANXIETY
     Route: 065
  10. VALTREX [Concomitant]
     Indication: PROPHYLAXIS
     Route: 065

REACTIONS (1)
  - H1N1 influenza [Recovered/Resolved]
